FAERS Safety Report 14330118 (Version 1)
Quarter: 2017Q4

REPORT INFORMATION
  Report Type: Spontaneous
  Country: FR (occurrence: FR)
  Receive Date: 20171227
  Receipt Date: 20171227
  Transmission Date: 20180321
  Serious: Yes (Hospitalization, Other)
  Sender: FDA-Public Use
  Company Number: FR-PFIZER INC-2017545621

PATIENT
  Age: 69 Year
  Sex: Male
  Weight: 72 kg

DRUGS (3)
  1. CARBOPLATIN. [Suspect]
     Active Substance: CARBOPLATIN
     Indication: CHEMOTHERAPY
     Dosage: 660 MG, 1X/DAY
     Route: 041
     Dates: start: 20170904, end: 20170904
  2. AVASTIN [Suspect]
     Active Substance: BEVACIZUMAB
     Indication: CHEMOTHERAPY
     Dosage: 1230 MG, 1X/DAY
     Route: 041
     Dates: start: 20170904, end: 20170904
  3. ALIMTA [Suspect]
     Active Substance: PEMETREXED DISODIUM
     Indication: CHEMOTHERAPY
     Dosage: 750 MG, 1X/DAY
     Route: 041
     Dates: start: 20170904, end: 20170904

REACTIONS (3)
  - Peritonitis [Not Recovered/Not Resolved]
  - Diverticulum intestinal [Not Recovered/Not Resolved]
  - Diverticular perforation [Not Recovered/Not Resolved]

NARRATIVE: CASE EVENT DATE: 20170910
